FAERS Safety Report 25257419 (Version 2)
Quarter: 2025Q2

REPORT INFORMATION
  Report Type: Spontaneous
  Country: CN (occurrence: CN)
  Receive Date: 20250430
  Receipt Date: 20250505
  Transmission Date: 20250716
  Serious: Yes (Life-Threatening)
  Sender: SANDOZ
  Company Number: CN-SANDOZ-SDZ2025CN027429

PATIENT

DRUGS (1)
  1. ZOLEDRONIC ACID [Suspect]
     Active Substance: ZOLEDRONIC ACID
     Indication: Osteoporosis
     Dosage: 5 MG, QD
     Route: 042
     Dates: start: 202109, end: 202209

REACTIONS (1)
  - Fracture [Unknown]
